FAERS Safety Report 7311283-2 (Version None)
Quarter: 2011Q1

REPORT INFORMATION
  Report Type: 
  Country: None (occurrence: None)
  Receive Date: 20110224
  Receipt Date: 20110211
  Transmission Date: 20110831
  Serious: Yes (Hospitalization)
  Sender: FDA-Public Use
  Company Number: US-ACTELION-A-NJ2011-43986

PATIENT

DRUGS (2)
  1. TRACLEER [Suspect]
     Indication: PULMONARY ARTERIAL HYPERTENSION
     Dosage: UNK
     Route: 048
     Dates: start: 20091105
  2. REVATIO [Concomitant]

REACTIONS (5)
  - UPPER RESPIRATORY TRACT INFECTION [None]
  - WHEEZING [None]
  - LUNG DISORDER [None]
  - COUGH [None]
  - CONCOMITANT DISEASE AGGRAVATED [None]
